FAERS Safety Report 5082734-1 (Version None)
Quarter: 2006Q3

REPORT INFORMATION
  Report Type: 
  Country: None (occurrence: None)
  Receive Date: 20060816
  Receipt Date: 20060816
  Transmission Date: 20061208
  Serious: Yes (Hospitalization)
  Sender: FDA-Public Use
  Company Number: None

PATIENT
  Sex: Male
  Weight: 79.7 kg

DRUGS (4)
  1. TINZAPARIN, PHARMION [Suspect]
     Indication: GLIOBLASTOMA MULTIFORME
     Dosage: 4500 IU ONCE DAILY SC
     Route: 058
     Dates: start: 20051109, end: 20060727
  2. GLIADEL [Concomitant]
  3. 06- BENZYLGUANINE [Concomitant]
  4. ZOMETA [Concomitant]

REACTIONS (4)
  - CONVULSION [None]
  - DISEASE PROGRESSION [None]
  - HEADACHE [None]
  - NEUROPATHY [None]
